FAERS Safety Report 5601677-5 (Version None)
Quarter: 2008Q1

REPORT INFORMATION
  Report Type: 
  Country: None (occurrence: None)
  Receive Date: 20080124
  Receipt Date: 20080117
  Transmission Date: 20080703
  Serious: Yes (Death, Hospitalization)
  Sender: FDA-Public Use
  Company Number: FR-WYE-G00912608

PATIENT
  Age: 7 Year
  Sex: Male

DRUGS (1)
  1. ADVIL [Suspect]
     Indication: PAIN
     Dosage: UNKNOWN
     Route: 048
     Dates: start: 20020101

REACTIONS (4)
  - CONVULSION [None]
  - JOINT SWELLING [None]
  - SEPTIC SHOCK [None]
  - SKIN EXFOLIATION [None]
